FAERS Safety Report 24336125 (Version 1)
Quarter: 2024Q3

REPORT INFORMATION
  Report Type: Spontaneous
  Country: BG (occurrence: BG)
  Receive Date: 20240919
  Receipt Date: 20240919
  Transmission Date: 20241017
  Serious: No
  Sender: ROCHE
  Company Number: BG-ROCHE-3503833

PATIENT
  Age: 3 Year
  Sex: Female
  Weight: 15.0 kg

DRUGS (1)
  1. TAMIFLU [Suspect]
     Active Substance: OSELTAMIVIR PHOSPHATE
     Indication: Influenza
     Dosage: 30 MG TWICE PER DAY FOR 4 DAYS, DAILY DOSE 60 MG, TOTAL DOSE 240 MG
     Route: 048
     Dates: start: 20240124, end: 20240128

REACTIONS (1)
  - Conversion disorder [Recovered/Resolved]

NARRATIVE: CASE EVENT DATE: 20240124
